FAERS Safety Report 7196348-0 (Version None)
Quarter: 2010Q4

REPORT INFORMATION
  Report Type: 
  Country: None (occurrence: None)
  Receive Date: 20101223
  Receipt Date: 20101021
  Transmission Date: 20110411
  Serious: No
  Sender: FDA-Public Use
  Company Number: US-AMGEN-TCS438667

PATIENT

DRUGS (4)
  1. ENBREL [Suspect]
     Indication: PSORIATIC ARTHROPATHY
     Dosage: 25 MG, 2 TIMES/WK
     Route: 058
     Dates: start: 20040804, end: 20100101
  2. CHONDROITIN [Concomitant]
     Dosage: 250 MG, UNK
  3. FLAXSEED OIL [Concomitant]
     Dosage: 1000 MG, UNK
  4. GLUCOSAMINE [Concomitant]
     Dosage: UNK
     Dates: end: 20100101

REACTIONS (18)
  - ARTHRALGIA [None]
  - BACK PAIN [None]
  - BASAL CELL CARCINOMA [None]
  - COUGH [None]
  - EYE DISORDER [None]
  - GAIT DISTURBANCE [None]
  - GASTROINTESTINAL DISORDER [None]
  - IMPAIRED HEALING [None]
  - INTERVERTEBRAL DISC PROTRUSION [None]
  - LIMB INJURY [None]
  - MORTON'S NEUROMA [None]
  - MUSCULOSKELETAL STIFFNESS [None]
  - PAIN IN EXTREMITY [None]
  - PSORIASIS [None]
  - PSORIATIC ARTHROPATHY [None]
  - SKIN DISCOLOURATION [None]
  - SUNBURN [None]
  - TENDON DISORDER [None]
